FAERS Safety Report 14251487 (Version 1)
Quarter: 2017Q4

REPORT INFORMATION
  Report Type: Spontaneous
  Country: CZ (occurrence: CZ)
  Receive Date: 20171205
  Receipt Date: 20171205
  Transmission Date: 20180321
  Serious: Yes (Other)
  Sender: FDA-Public Use
  Company Number: PHHY2017CZ178851

PATIENT
  Sex: Male

DRUGS (14)
  1. ADRENALIN [Concomitant]
     Active Substance: EPINEPHRINE
     Indication: HAEMORRHAGE PROPHYLAXIS
     Dosage: UNK
     Route: 065
  2. BEVACIZUMAB. [Concomitant]
     Active Substance: BEVACIZUMAB
     Indication: ANGIOPATHY
     Dosage: 7.5 MG/KG, Q3W
     Route: 065
     Dates: start: 201301, end: 201502
  3. CLARITHROMYCIN. [Concomitant]
     Active Substance: CLARITHROMYCIN
     Indication: EMPHYSEMA
     Dosage: UNK
     Route: 065
  4. PROPRANOLOL [Concomitant]
     Active Substance: PROPRANOLOL HYDROCHLORIDE
     Indication: ANGIOPATHY
     Dosage: UNK
     Route: 065
  5. INTRON A [Concomitant]
     Active Substance: INTERFERON ALFA-2B
     Indication: ANGIOPATHY
     Dosage: UNK
     Route: 065
     Dates: end: 2006
  6. MYRIN [Concomitant]
     Active Substance: THALIDOMIDE
     Indication: ANGIOPATHY
     Dosage: UNK
     Route: 065
     Dates: start: 2006, end: 2010
  7. PACLITAXEL. [Concomitant]
     Active Substance: PACLITAXEL
     Indication: ANGIOPATHY
     Dosage: UNK
     Route: 065
     Dates: start: 201301
  8. SANDOSTATIN [Concomitant]
     Active Substance: OCTREOTIDE ACETATE
     Indication: PRODUCT USED FOR UNKNOWN INDICATION
     Route: 065
  9. ZOMETA [Suspect]
     Active Substance: ZOLEDRONIC ACID
     Indication: OSTEOLYSIS
     Dosage: 4 MG, 28 WEEKS INTERVAL
     Route: 042
     Dates: start: 20050623, end: 2009
  10. ZOMETA [Suspect]
     Active Substance: ZOLEDRONIC ACID
     Dosage: 4 MG, ONCE IN TWO MONTHS
     Route: 042
     Dates: start: 2009
  11. AFLIBERCEPT [Concomitant]
     Active Substance: AFLIBERCEPT
     Indication: ANGIOPATHY
     Dosage: UNK
     Route: 065
     Dates: start: 201506
  12. CYCLOPHOSPHAMIDE. [Concomitant]
     Active Substance: CYCLOPHOSPHAMIDE
     Indication: ANGIOPATHY
     Dosage: UNK
     Route: 065
     Dates: start: 201204
  13. MYRIN [Concomitant]
     Active Substance: THALIDOMIDE
     Dosage: UNK
     Route: 065
  14. REVLIMID [Concomitant]
     Active Substance: LENALIDOMIDE
     Indication: ANGIOPATHY
     Dosage: UNK
     Route: 065

REACTIONS (1)
  - Osteonecrosis of jaw [Recovered/Resolved]

NARRATIVE: CASE EVENT DATE: 2017
